FAERS Safety Report 5511164-0 (Version None)
Quarter: 2007Q4

REPORT INFORMATION
  Report Type: 
  Country: None (occurrence: None)
  Receive Date: 20071109
  Receipt Date: 20071105
  Transmission Date: 20080405
  Serious: Yes (Disabling)
  Sender: FDA-Public Use
  Company Number: US-AVENTIS-200717332US

PATIENT
  Sex: Male

DRUGS (9)
  1. CARAC [Suspect]
     Dosage: DOSE: 0.5%
     Route: 061
     Dates: start: 20071002, end: 20071019
  2. KURIC [Suspect]
     Dosage: DOSE: UNK
     Route: 061
  3. STEROID CREAM NOS [Suspect]
     Dosage: DOSE: UNK
     Dates: start: 20071008
  4. TRIAM                              /00012501/ [Concomitant]
     Dosage: DOSE: UNK
  5. TOPROL-XL [Concomitant]
  6. ZYRTEC [Concomitant]
  7. ADVAIR DISKUS 100/50 [Concomitant]
     Dosage: DOSE QUANTITY: 250
  8. MAXZIDE [Concomitant]
  9. ZYRTEC [Concomitant]

REACTIONS (9)
  - APPLICATION SITE BLEEDING [None]
  - APPLICATION SITE ERYTHEMA [None]
  - APPLICATION SITE EXFOLIATION [None]
  - APPLICATION SITE INFECTION [None]
  - APPLICATION SITE IRRITATION [None]
  - APPLICATION SITE RASH [None]
  - ENTEROCOCCAL INFECTION [None]
  - PAIN [None]
  - WRONG DRUG ADMINISTERED [None]
